FAERS Safety Report 22636919 (Version 1)
Quarter: 2023Q2

REPORT INFORMATION
  Report Type: Spontaneous
  Country: US (occurrence: US)
  Receive Date: 20230626
  Receipt Date: 20230626
  Transmission Date: 20230722
  Serious: Yes (Other)
  Sender: FDA-Public Use
  Company Number: US-SA-SAC20230626000041

PATIENT
  Age: 66 Year
  Sex: Male

DRUGS (3)
  1. ELOCTATE [Suspect]
     Active Substance: EFMOROCTOCOG ALFA
     Indication: Factor VIII deficiency
     Dosage: 4330 UNITS (3897- 4763) SLOW IV PUSH TWICE WEEKLY (BIW) EVERY 3-5 DAYS
     Route: 042
     Dates: start: 202303
  2. ELOCTATE [Suspect]
     Active Substance: EFMOROCTOCOG ALFA
     Dosage: 2165 UNITS (1949-2381) SLOW IV PUSH EVERY 12-24 HOURS AS NEEDED (PRN) FOR MINOR BLEEDS
     Route: 042
     Dates: start: 202303
  3. ELOCTATE [Suspect]
     Active Substance: EFMOROCTOCOG ALFA
     Dosage: 4,330 UNITS (3897-4763) SLOW IV PUSH EVERY 24 HOURS (QD) AS NEEDED OR AS DIRECTED FOR MAJOR BLEEDING
     Route: 042
     Dates: start: 202303

REACTIONS (1)
  - Haemorrhage [Recovered/Resolved]

NARRATIVE: CASE EVENT DATE: 20230608
